FAERS Safety Report 9663878 (Version 1)
Quarter: 2013Q4

REPORT INFORMATION
  Report Type: Spontaneous
  Country: US (occurrence: None)
  Receive Date: 20131030
  Receipt Date: 20131030
  Transmission Date: 20140711
  Serious: Yes (Disabling)
  Sender: FDA-Public Use
  Company Number: None

PATIENT
  Age: 83 Year
  Sex: Female
  Weight: 69.85 kg

DRUGS (16)
  1. RISPERIDONE [Suspect]
     Indication: ANXIETY
     Dosage: 90 3 TIMES DAILY ORAL TABLET
     Dates: start: 20130820, end: 20130919
  2. ESTERDIOL [Concomitant]
  3. CLARINEX (GENERIC) [Concomitant]
  4. BIOO [Concomitant]
  5. 5-HTP [Concomitant]
  6. D3 1000 [Concomitant]
  7. DULCOLAX [Concomitant]
  8. ALPRAZOLAM [Concomitant]
  9. OMEPRAZOLE [Concomitant]
  10. FERRUS GLUC [Concomitant]
  11. MAG-OXIDE [Concomitant]
  12. DOC-A-LACE [Concomitant]
  13. HYDROCODONE /AC 5-500 [Concomitant]
  14. LUMIGAN [Concomitant]
  15. COMBIGAN [Concomitant]
  16. DESLORATADINE [Concomitant]

REACTIONS (8)
  - Parkinsonism [None]
  - Drooling [None]
  - Confusional state [None]
  - Muscular weakness [None]
  - Muscle spasms [None]
  - Abasia [None]
  - Tremor [None]
  - Pneumonia [None]
